FAERS Safety Report 16217337 (Version 1)
Quarter: 2019Q2

REPORT INFORMATION
  Report Type: Spontaneous
  Country: US (occurrence: US)
  Receive Date: 20190419
  Receipt Date: 20190419
  Transmission Date: 20190711
  Serious: Yes (Other)
  Sender: FDA-Public Use
  Company Number: US-PFIZER INC-2019161832

PATIENT
  Age: 54 Year
  Sex: Female

DRUGS (1)
  1. LYRICA [Suspect]
     Active Substance: PREGABALIN
     Dosage: 200 MG, (150 MG AT NIGHT 50 DURING DAY, A TOTAL OF 200 MG PER DAY)
     Dates: start: 2000

REACTIONS (2)
  - Intentional product use issue [Unknown]
  - Suicidal ideation [Unknown]
